FAERS Safety Report 19257877 (Version 1)
Quarter: 2021Q2

REPORT INFORMATION
  Report Type: Spontaneous
  Country: US (occurrence: US)
  Receive Date: 20210514
  Receipt Date: 20210514
  Transmission Date: 20210717
  Serious: Yes (Other)
  Sender: FDA-Public Use
  Company Number: US-BAYER-2021-130012

PATIENT
  Age: 32 Year
  Sex: Female

DRUGS (2)
  1. BAYER LOW DOSE [Suspect]
     Active Substance: ASPIRIN
     Indication: BLOOD PRESSURE MANAGEMENT
     Dosage: 81 MG
  2. ABILIFY MAINTENA [Suspect]
     Active Substance: ARIPIPRAZOLE
     Indication: BIPOLAR DISORDER
     Dosage: 300MG EVERY 4 WEEKS

REACTIONS (4)
  - Product use in unapproved indication [Unknown]
  - Pre-eclampsia [Recovered/Resolved]
  - Gestational hypertension [Recovered/Resolved]
  - Maternal exposure during pregnancy [Unknown]

NARRATIVE: CASE EVENT DATE: 20200714
